FAERS Safety Report 21176190 (Version 1)
Quarter: 2022Q3

REPORT INFORMATION
  Report Type: Spontaneous
  Country: US (occurrence: US)
  Receive Date: 20220805
  Receipt Date: 20220805
  Transmission Date: 20221026
  Serious: No
  Sender: FDA-Public Use
  Company Number: US-BAXTER-2022BAX016316

PATIENT
  Sex: Male
  Weight: 68.04 kg

DRUGS (4)
  1. CYCLOPHOSPHAMIDE [Suspect]
     Active Substance: CYCLOPHOSPHAMIDE
     Indication: Neoplasm malignant
     Route: 065
  2. VINCRISTINE [Suspect]
     Active Substance: VINCRISTINE
     Indication: Neoplasm malignant
     Route: 065
  3. PROMETHAZINE [Concomitant]
     Active Substance: PROMETHAZINE HYDROCHLORIDE
     Indication: Prophylaxis
     Dosage: 25 MG. ONE TABLET AS NEEDED
     Route: 065
  4. GABAPENTIN [Concomitant]
     Active Substance: GABAPENTIN
     Indication: Back pain
     Dosage: LABEL SAYS 1 TABLET 6 TIMES DAILY, STARTED IT A LONG TIME AGO, 600 MG 2 IN THE EVENING BY MOUTH FOR
     Route: 048

REACTIONS (4)
  - SARS-CoV-2 test positive [Unknown]
  - Vomiting [Unknown]
  - Tremor [Unknown]
  - Urinary tract infection [Unknown]
